FAERS Safety Report 5018002-3 (Version None)
Quarter: 2006Q2

REPORT INFORMATION
  Report Type: 
  Country: None (occurrence: None)
  Receive Date: 20060530
  Receipt Date: 20050211
  Transmission Date: 20061013
  Serious: Yes (Other)
  Sender: FDA-Public Use
  Company Number: 2005014202

PATIENT
  Age: 57 Year
  Sex: Female

DRUGS (2)
  1. LYRICA [Suspect]
     Indication: POST HERPETIC NEURALGIA
     Dosage: 600 MG (300 MG, 2 IN 1 D), ORAL
     Route: 048
     Dates: start: 20040920, end: 20050127
  2. SIMVASTATIN [Concomitant]

REACTIONS (9)
  - BREATH ODOUR [None]
  - DRY EYE [None]
  - DRY MOUTH [None]
  - DYSGEUSIA [None]
  - HEPATITIS [None]
  - KETOACIDOSIS [None]
  - MALAISE [None]
  - POLLAKIURIA [None]
  - WEIGHT INCREASED [None]
